FAERS Safety Report 12654578 (Version 1)
Quarter: 2016Q3

REPORT INFORMATION
  Report Type: Spontaneous
  Country: US (occurrence: None)
  Receive Date: 20160815
  Receipt Date: 20160815
  Transmission Date: 20161109
  Serious: No
  Sender: FDA-Public Use
  Company Number: None

PATIENT
  Age: 75 Year
  Sex: Female
  Weight: 62.6 kg

DRUGS (11)
  1. CALCIUM [Concomitant]
     Active Substance: CALCIUM
  2. SIMVASTATIN. [Concomitant]
     Active Substance: SIMVASTATIN
  3. FISH OIL WITH OMEGA 3 [Concomitant]
  4. CHLORTHALID [Concomitant]
  5. TEMAZEPAM. [Suspect]
     Active Substance: TEMAZEPAM
  6. CLARITIN [Concomitant]
     Active Substance: LORATADINE
  7. FUROSEMIDE. [Concomitant]
     Active Substance: FUROSEMIDE
  8. 1 A DAY VITAMIN [Concomitant]
     Active Substance: VITAMINS
  9. ASPIRIN. [Concomitant]
     Active Substance: ASPIRIN
  10. KLOR-CON [Concomitant]
     Active Substance: POTASSIUM CHLORIDE
  11. VISION VITAMIN [Concomitant]

REACTIONS (8)
  - Pruritus generalised [None]
  - Fatigue [None]
  - Feeling hot [None]
  - Withdrawal syndrome [None]
  - Heart rate decreased [None]
  - Renal impairment [None]
  - Blood pressure decreased [None]
  - Nausea [None]
